FAERS Safety Report 8395818-7 (Version None)
Quarter: 2012Q2

REPORT INFORMATION
  Report Type: 
  Country: None (occurrence: None)
  Receive Date: 20120530
  Receipt Date: 20120524
  Transmission Date: 20120825
  Serious: Yes (Death)
  Sender: FDA-Public Use
  Company Number: US-ROCHE-1017714

PATIENT
  Sex: Female
  Weight: 82 kg

DRUGS (16)
  1. TORADOL [Suspect]
     Indication: CONFUSIONAL STATE
  2. LASIX [Concomitant]
  3. TOPROL-XL [Concomitant]
  4. TORADOL [Suspect]
     Indication: PELVIC PAIN
     Dates: start: 20110626
  5. VICOPROFEN [Suspect]
     Indication: PELVIC PAIN
     Route: 048
     Dates: start: 20110626
  6. VICOPROFEN [Suspect]
     Indication: CONFUSIONAL STATE
  7. TIAZAC [Concomitant]
  8. VICOPROFEN [Suspect]
     Indication: FALL
  9. ELAVIL [Concomitant]
  10. ISOSORBIDE DINITRATE [Concomitant]
  11. ASPIRIN [Concomitant]
  12. TORADOL [Suspect]
     Indication: FALL
  13. OXYBUTYNIN [Concomitant]
  14. CRESTOR [Concomitant]
  15. COUMADIN [Concomitant]
     Route: 065
  16. MELOXICAM [Concomitant]

REACTIONS (2)
  - HAEMATEMESIS [None]
  - ABDOMINAL DISTENSION [None]
